FAERS Safety Report 9920811 (Version 1)
Quarter: 2014Q1

REPORT INFORMATION
  Report Type: Spontaneous
  Country: CL (occurrence: CL)
  Receive Date: 20140224
  Receipt Date: 20140224
  Transmission Date: 20141002
  Serious: Yes (Other)
  Sender: FDA-Public Use
  Company Number: CL-PFIZER INC-2014048894

PATIENT
  Age: 71 Year
  Sex: Male

DRUGS (3)
  1. XALATAN [Suspect]
     Indication: OCULAR HYPERTENSION
     Dosage: 1 DF, 1X/DAY (1 DROP ON EACH EYE)
     Route: 047
     Dates: start: 2008
  2. ALPHAGAN [Concomitant]
     Dosage: UNK
  3. ASPIRIN ^BAYER^ [Concomitant]
     Dosage: 100 MG, 1X/DAY

REACTIONS (6)
  - Ocular vascular disorder [Not Recovered/Not Resolved]
  - Thrombosis [Not Recovered/Not Resolved]
  - Asthenopia [Not Recovered/Not Resolved]
  - Prostatic disorder [Unknown]
  - Eye pain [Not Recovered/Not Resolved]
  - Drug ineffective [Not Recovered/Not Resolved]
